FAERS Safety Report 12689727 (Version 1)
Quarter: 2016Q3

REPORT INFORMATION
  Report Type: Spontaneous
  Country: US (occurrence: None)
  Receive Date: 20160825
  Receipt Date: 20160825
  Transmission Date: 20161109
  Serious: No
  Sender: FDA-Public Use
  Company Number: None

PATIENT
  Sex: Female

DRUGS (1)
  1. NEXPLANON [Suspect]
     Active Substance: ETONOGESTREL
     Indication: CONTRACEPTION
     Dates: start: 20140712, end: 20160801

REACTIONS (4)
  - Acne [None]
  - Headache [None]
  - Menometrorrhagia [None]
  - Pain [None]

NARRATIVE: CASE EVENT DATE: 20140712
